FAERS Safety Report 7071954-2 (Version None)
Quarter: 2010Q4

REPORT INFORMATION
  Report Type: 
  Country: None (occurrence: None)
  Receive Date: 20101029
  Receipt Date: 20091119
  Transmission Date: 20110411
  Serious: No
  Sender: FDA-Public Use
  Company Number: A0816085A

PATIENT
  Age: 43 Year
  Sex: Female

DRUGS (2)
  1. ADVAIR DISKUS 100/50 [Suspect]
     Dosage: 1PUFF TWICE PER DAY
     Route: 055
     Dates: start: 20090101
  2. BIRTH CONTROL [Concomitant]

REACTIONS (7)
  - CHEST DISCOMFORT [None]
  - DYSPHONIA [None]
  - HEADACHE [None]
  - INSOMNIA [None]
  - OROPHARYNGEAL PAIN [None]
  - POOR QUALITY SLEEP [None]
  - VISION BLURRED [None]
